FAERS Safety Report 16563314 (Version 1)
Quarter: 2019Q3

REPORT INFORMATION
  Report Type: Spontaneous
  Country: RO (occurrence: RO)
  Receive Date: 20190711
  Receipt Date: 20190711
  Transmission Date: 20191004
  Serious: Yes (Death, Hospitalization, Other)
  Sender: FDA-Public Use
  Company Number: PHHY2019RO158265

PATIENT
  Age: 2 Year
  Sex: Male

DRUGS (2)
  1. IBUPROFEN. [Suspect]
     Active Substance: IBUPROFEN
     Indication: PAIN
     Dosage: UNK
     Route: 065
  2. AUGMENTIN [Suspect]
     Active Substance: AMOXICILLIN\CLAVULANATE POTASSIUM
     Indication: EAR INFECTION
     Dosage: UNK
     Route: 065

REACTIONS (16)
  - Acute sinusitis [Unknown]
  - Pyrexia [Unknown]
  - Rhinorrhoea [Unknown]
  - Secretion discharge [Unknown]
  - Coma [Unknown]
  - Mood altered [Unknown]
  - Musculoskeletal stiffness [Unknown]
  - Mydriasis [Unknown]
  - Cardio-respiratory arrest [Fatal]
  - Oedema [Unknown]
  - Vomiting [Unknown]
  - Streptococcal infection [Unknown]
  - Meningitis bacterial [Unknown]
  - Drug ineffective [Unknown]
  - Agitation [Unknown]
  - Central nervous system lesion [Unknown]
